FAERS Safety Report 12175629 (Version 2)
Quarter: 2016Q2

REPORT INFORMATION
  Report Type: Spontaneous
  Country: BR (occurrence: BR)
  Receive Date: 20160314
  Receipt Date: 20160414
  Transmission Date: 20160815
  Serious: Yes (Death, Hospitalization)
  Sender: FDA-Public Use
  Company Number: BR-PFIZER INC-2016147656

PATIENT
  Age: 60 Year
  Sex: Male

DRUGS (1)
  1. SUTENT [Suspect]
     Active Substance: SUNITINIB MALATE
     Indication: METASTATIC RENAL CELL CARCINOMA
     Dosage: UNK
     Dates: end: 20160203

REACTIONS (4)
  - Pulmonary sepsis [Fatal]
  - Pneumonia bacterial [Fatal]
  - Dyspnoea [Not Recovered/Not Resolved]
  - Pulmonary tuberculosis [Fatal]

NARRATIVE: CASE EVENT DATE: 201510
